FAERS Safety Report 6217817-3 (Version None)
Quarter: 2009Q2

REPORT INFORMATION
  Report Type: 
  Country: None (occurrence: None)
  Receive Date: 20090608
  Receipt Date: 20090602
  Transmission Date: 20091009
  Serious: Yes (Death)
  Sender: FDA-Public Use
  Company Number: JP-ASTRAZENECA-2009SE02155

PATIENT
  Age: 79 Year
  Sex: Male

DRUGS (1)
  1. MEROPEN [Suspect]
     Indication: INFECTION
     Route: 042

REACTIONS (1)
  - HAEMOLYTIC ANAEMIA [None]
